FAERS Safety Report 11402406 (Version 1)
Quarter: 2015Q3

REPORT INFORMATION
  Report Type: Spontaneous
  Country: US (occurrence: US)
  Receive Date: 20150821
  Receipt Date: 20150821
  Transmission Date: 20151125
  Serious: Yes (Other)
  Sender: FDA-Public Use
  Company Number: US-ROCHE-1292153

PATIENT
  Sex: Female

DRUGS (3)
  1. TELAPREVIR [Suspect]
     Active Substance: TELAPREVIR
     Indication: HEPATITIS C
     Route: 065
  2. RIBAVIRIN. [Suspect]
     Active Substance: RIBAVIRIN
     Indication: HEPATITIS C
     Route: 065
     Dates: start: 20130920
  3. PEGASYS [Suspect]
     Active Substance: PEGINTERFERON ALFA-2A
     Indication: HEPATITIS C
     Route: 065
     Dates: start: 20130920

REACTIONS (11)
  - Fall [Unknown]
  - Sleep disorder [Unknown]
  - Panic reaction [Unknown]
  - Decreased appetite [Unknown]
  - Depression [Unknown]
  - Mental disorder [Unknown]
  - Blood potassium decreased [Unknown]
  - Suicidal ideation [Recovered/Resolved]
  - Vertigo [Unknown]
  - Diarrhoea [Unknown]
  - Anaemia [Unknown]
